FAERS Safety Report 17099102 (Version 3)
Quarter: 2021Q1

REPORT INFORMATION
  Report Type: Report from Study
  Country: US (occurrence: US)
  Receive Date: 20191202
  Receipt Date: 20210224
  Transmission Date: 20210419
  Serious: Yes (Hospitalization)
  Sender: FDA-Public Use
  Company Number: US-SA-2019SA332278

PATIENT
  Age: 34 Year
  Sex: Male

DRUGS (1)
  1. ALEMTUZUMAB [Suspect]
     Active Substance: ALEMTUZUMAB
     Indication: MULTIPLE SCLEROSIS
     Dosage: 12 MG, QD
     Route: 042
     Dates: start: 20191111, end: 20191115

REACTIONS (10)
  - Peripheral swelling [Recovered/Resolved]
  - Nasopharyngitis [Not Recovered/Not Resolved]
  - Dysphonia [Unknown]
  - Weight increased [Recovered/Resolved]
  - Dental caries [Unknown]
  - Disorientation [Unknown]
  - Nasal inflammation [Unknown]
  - Paranasal sinus hypersecretion [Unknown]
  - Cough [Not Recovered/Not Resolved]
  - Paranasal sinus discomfort [Unknown]

NARRATIVE: CASE EVENT DATE: 201911
